FAERS Safety Report 14023614 (Version 2)
Quarter: 2017Q4

REPORT INFORMATION
  Report Type: Spontaneous
  Country: US (occurrence: US)
  Receive Date: 20170929
  Receipt Date: 20171006
  Transmission Date: 20180321
  Serious: No
  Sender: FDA-Public Use
  Company Number: US-BAYER-2017-187707

PATIENT
  Age: 65 Year
  Sex: Female
  Weight: 113.38 kg

DRUGS (1)
  1. MIRALAX [Suspect]
     Active Substance: POLYETHYLENE GLYCOL 3350
     Indication: GASTROINTESTINAL DISORDER
     Dosage: UNK (1 TABLESPOON IN 16.9 OZ WATER)
     Route: 048
     Dates: start: 2015, end: 201709

REACTIONS (3)
  - Wrong technique in product usage process [Not Recovered/Not Resolved]
  - Dysgeusia [Unknown]
  - Underdose [Not Recovered/Not Resolved]

NARRATIVE: CASE EVENT DATE: 2015
